FAERS Safety Report 4416489-8 (Version None)
Quarter: 2004Q3

REPORT INFORMATION
  Report Type: 
  Country: None (occurrence: None)
  Receive Date: 20040802
  Receipt Date: 20040715
  Transmission Date: 20050211
  Serious: Yes (Other)
  Sender: FDA-Public Use
  Company Number: M2004-0998

PATIENT
  Age: 86 Year
  Sex: Female

DRUGS (1)
  1. RIMACTANE [Suspect]
     Dates: start: 19990401, end: 19990801

REACTIONS (3)
  - DRUG TOXICITY [None]
  - NEUROPATHY [None]
  - VISUAL DISTURBANCE [None]
